FAERS Safety Report 8837162 (Version 1)
Quarter: 2012Q4

REPORT INFORMATION
  Report Type: 
  Country: AU (occurrence: AU)
  Receive Date: 20121012
  Receipt Date: 20121012
  Transmission Date: 20130627
  Serious: Yes (Other)
  Sender: FDA-Public Use
  Company Number: AU-BRISTOL-MYERS SQUIBB COMPANY-17010802

PATIENT
  Age: 82 Year
  Sex: Female

DRUGS (2)
  1. WARFARIN SODIUM [Suspect]
     Indication: MITRAL VALVE REPLACEMENT
  2. WARFARIN SODIUM [Suspect]
     Indication: AORTIC VALVE REPLACEMENT

REACTIONS (1)
  - Vascular pseudoaneurysm [Recovered/Resolved]
